FAERS Safety Report 15534509 (Version 3)
Quarter: 2018Q4

REPORT INFORMATION
  Report Type: Spontaneous
  Country: US (occurrence: US)
  Receive Date: 20181022
  Receipt Date: 20181029
  Transmission Date: 20190205
  Serious: No
  Sender: FDA-Public Use
  Company Number: US-JNJFOC-20181005307

PATIENT
  Sex: Female

DRUGS (2)
  1. TYLENOL EXTRA STRENGTH [Suspect]
     Active Substance: ACETAMINOPHEN
     Indication: MUSCLE INJURY
     Dosage: 2 CAPLETS 3 TIMES A DAY
     Route: 048
     Dates: start: 201809
  2. TYLENOL EXTRA STRENGTH [Suspect]
     Active Substance: ACETAMINOPHEN
     Indication: ARTHRALGIA
     Dosage: 2 CAPLETS 3 TIMES A DAY
     Route: 048
     Dates: start: 201809

REACTIONS (2)
  - Product use in unapproved indication [Unknown]
  - Hypertension [Recovered/Resolved]
